FAERS Safety Report 25362561 (Version 1)
Quarter: 2025Q2

REPORT INFORMATION
  Report Type: Spontaneous
  Country: US (occurrence: None)
  Receive Date: 20250523
  Receipt Date: 20250523
  Transmission Date: 20250717
  Serious: Yes (Other)
  Sender: FDA-CTU
  Company Number: None

PATIENT
  Age: 75 Year
  Sex: Female

DRUGS (3)
  1. TRUQAP [Suspect]
     Active Substance: CAPIVASERTIB
     Indication: Breast cancer
     Dates: start: 20250331, end: 20250418
  2. FULVESTRANT [Suspect]
     Active Substance: FULVESTRANT
  3. NITROFURANTOIN [Suspect]
     Active Substance: NITROFURANTOIN

REACTIONS (7)
  - Diarrhoea [None]
  - Urine output increased [None]
  - Hyperglycaemia [None]
  - Urinary tract infection [None]
  - Dry skin [None]
  - Skin toxicity [None]
  - Rash [None]

NARRATIVE: CASE EVENT DATE: 20250402
